FAERS Safety Report 4483682-8 (Version None)
Quarter: 2004Q4

REPORT INFORMATION
  Report Type: 
  Country: None (occurrence: None)
  Receive Date: 20041020
  Receipt Date: 20041007
  Transmission Date: 20050328
  Serious: Yes (Other)
  Sender: FDA-Public Use
  Company Number: 2004076694

PATIENT
  Age: 65 Year
  Sex: Female
  Weight: 64.4108 kg

DRUGS (3)
  1. LIPITOR [Suspect]
     Indication: BLOOD CHOLESTEROL INCREASED
     Dosage: 10 MG (10 MG, 1 IN 1 D), ORAL
     Route: 048
     Dates: end: 20040701
  2. ROFECOXIB [Concomitant]
  3. OMEPRAZOLE [Concomitant]

REACTIONS (8)
  - ARTHRITIS [None]
  - HAEMARTHROSIS [None]
  - HAEMORRHAGE [None]
  - JOINT RANGE OF MOTION DECREASED [None]
  - JOINT SWELLING [None]
  - JOINT WARMTH [None]
  - KNEE ARTHROPLASTY [None]
  - SYNOVIAL DISORDER [None]
